FAERS Safety Report 7852623-5 (Version None)
Quarter: 2011Q4

REPORT INFORMATION
  Report Type: 
  Country: None (occurrence: None)
  Receive Date: 20111026
  Receipt Date: 20111019
  Transmission Date: 20120403
  Serious: Yes (Death, Hospitalization)
  Sender: FDA-Public Use
  Company Number: US-GLAXOSMITHKLINE-A0950336A

PATIENT
  Age: 54 Year
  Sex: Female

DRUGS (6)
  1. PROVIGIL [Concomitant]
  2. REQUIP [Suspect]
     Dosage: 1MG PER DAY
     Route: 065
  3. VESICARE [Suspect]
     Indication: HYPERTONIC BLADDER
     Route: 048
  4. VYTORIN [Concomitant]
  5. FLUOXETINE [Concomitant]
  6. CYCLOBENZAPRINE [Concomitant]

REACTIONS (3)
  - PNEUMONIA [None]
  - THROMBOSIS [None]
  - LUNG NEOPLASM MALIGNANT [None]
